FAERS Safety Report 7664786-5 (Version None)
Quarter: 2011Q3

REPORT INFORMATION
  Report Type: 
  Country: None (occurrence: None)
  Receive Date: 20110806
  Receipt Date: 20110201
  Transmission Date: 20111222
  Serious: No
  Sender: FDA-Public Use
  Company Number: US-ABBOTT-11P-163-0701805-00

PATIENT
  Sex: Female
  Weight: 61.29 kg

DRUGS (3)
  1. NIASPAN [Suspect]
     Indication: LOW DENSITY LIPOPROTEIN
     Dosage: AT BEDTIME
     Dates: start: 20110131, end: 20110131
  2. UNKNOWN MEDICATION [Concomitant]
     Indication: GASTROOESOPHAGEAL REFLUX DISEASE
  3. UNKNOWN MEDICATION [Concomitant]
     Indication: IRRITABLE BOWEL SYNDROME

REACTIONS (1)
  - ABDOMINAL PAIN UPPER [None]
